FAERS Safety Report 22349193 (Version 1)
Quarter: 2023Q2

REPORT INFORMATION
  Report Type: Spontaneous
  Country: US (occurrence: None)
  Receive Date: 20230522
  Receipt Date: 20230522
  Transmission Date: 20230722
  Serious: No
  Sender: FDA-Public Use
  Company Number: 2023A115146

PATIENT
  Age: 34 Year
  Sex: Female

DRUGS (2)
  1. FASENRA [Suspect]
     Active Substance: BENRALIZUMAB
     Route: 058
  2. DUPILUMAB [Suspect]
     Active Substance: DUPILUMAB

REACTIONS (7)
  - Dyspnoea [Unknown]
  - Periorbital inflammation [Unknown]
  - Injection site erythema [Recovered/Resolved]
  - Condition aggravated [Unknown]
  - Psoriasis [Unknown]
  - Eczema [Unknown]
  - Drug ineffective [Unknown]
